FAERS Safety Report 7003339-9 (Version None)
Quarter: 2010Q3

REPORT INFORMATION
  Report Type: 
  Country: None (occurrence: None)
  Receive Date: 20100920
  Receipt Date: 20100907
  Transmission Date: 20110219
  Serious: Yes (Other)
  Sender: FDA-Public Use
  Company Number: CN-WATSON-2010-12181

PATIENT
  Age: 62 Year
  Sex: Female

DRUGS (1)
  1. CLINDAMYCIN HYDROCHLORIDE [Suspect]
     Indication: BRONCHITIS CHRONIC
     Dosage: 20 ML SINGLE DOSE
     Route: 042

REACTIONS (1)
  - LARYNGEAL OEDEMA [None]
